FAERS Safety Report 13986318 (Version 2)
Quarter: 2017Q3

REPORT INFORMATION
  Report Type: Spontaneous
  Country: US (occurrence: US)
  Receive Date: 20170919
  Receipt Date: 20170927
  Transmission Date: 20171128
  Serious: Yes (Hospitalization)
  Sender: FDA-Public Use
  Company Number: US-UNITED THERAPEUTICS-UNT-2017-013093

PATIENT
  Age: 68 Year
  Sex: Female
  Weight: 89.8 kg

DRUGS (3)
  1. LETAIRIS [Concomitant]
     Active Substance: AMBRISENTAN
     Indication: PRODUCT USED FOR UNKNOWN INDICATION
  2. REMODULIN [Suspect]
     Active Substance: TREPROSTINIL
     Indication: PULMONARY HYPERTENSION
     Dosage: 0.0695 ?G/KG, CONTINUING
     Route: 058
     Dates: start: 20100903
  3. REMODULIN [Suspect]
     Active Substance: TREPROSTINIL
     Dosage: 0.0695 ?G/KG, CONTINUING
     Route: 058
     Dates: start: 20120927

REACTIONS (1)
  - Pneumonia [Unknown]

NARRATIVE: CASE EVENT DATE: 20170905
